FAERS Safety Report 7380604-7 (Version None)
Quarter: 2011Q1

REPORT INFORMATION
  Report Type: 
  Country: None (occurrence: None)
  Receive Date: 20110325
  Receipt Date: 20110325
  Transmission Date: 20110831
  Serious: Yes (Hospitalization)
  Sender: FDA-Public Use
  Company Number: None

PATIENT
  Sex: Female
  Weight: 117.9352 kg

DRUGS (1)
  1. GAMMAGARD [Suspect]
     Indication: CHRONIC INFLAMMATORY DEMYELINATING POLYRADICULONEUROPATHY
     Dosage: 240G IV
     Route: 042
     Dates: start: 20110314, end: 20110318

REACTIONS (4)
  - DYSPNOEA [None]
  - RASH [None]
  - HAEMATURIA [None]
  - CHROMATURIA [None]
